FAERS Safety Report 24018142 (Version 1)
Quarter: 2024Q2

REPORT INFORMATION
  Report Type: Spontaneous
  Country: US (occurrence: US)
  Receive Date: 20240627
  Receipt Date: 20240627
  Transmission Date: 20240715
  Serious: Yes (Hospitalization, Other)
  Sender: FDA-Public Use
  Company Number: US-VANTIVE-2024VAN017822

PATIENT
  Age: 52 Year
  Sex: Female

DRUGS (2)
  1. EXTRANEAL [Suspect]
     Active Substance: CALCIUM CHLORIDE\ICODEXTRIN\MAGNESIUM CHLORIDE\SODIUM CHLORIDE\SODIUM LACTATE
     Dosage: LAST FILL 2000 ML
     Route: 033
  2. DELFLEX [Suspect]
     Active Substance: CALCIUM CHLORIDE\DEXTROSE\MAGNESIUM CHLORIDE\SODIUM CHLORIDE\SODIUM LACTATE
     Dosage: 2200 ML FOR 4 CYCLES
     Route: 033

REACTIONS (5)
  - Pancreatitis [Recovered/Resolved]
  - Abdominal pain [Unknown]
  - Decubitus ulcer [Unknown]
  - Peritonitis [Unknown]
  - Peritoneal cloudy effluent [Unknown]

NARRATIVE: CASE EVENT DATE: 20240614
